FAERS Safety Report 6885109-5 (Version None)
Quarter: 2010Q3

REPORT INFORMATION
  Report Type: 
  Country: None (occurrence: None)
  Receive Date: 20100729
  Receipt Date: 20071126
  Transmission Date: 20110219
  Serious: No
  Sender: FDA-Public Use
  Company Number: US-PFIZER INC-2007086424

PATIENT
  Sex: Female
  Weight: 54.43 kg

DRUGS (7)
  1. CELEBREX [Suspect]
     Indication: ARTHRALGIA
     Route: 048
     Dates: start: 20071011
  2. CELEBREX [Suspect]
     Indication: SPINAL OSTEOARTHRITIS
  3. CELEBREX [Suspect]
     Indication: INTERVERTEBRAL DISC DISORDER
  4. ATENOLOL [Concomitant]
  5. ATACAND [Concomitant]
  6. PREMARIN [Concomitant]
  7. FOSAMAX [Concomitant]

REACTIONS (2)
  - DYSURIA [None]
  - URINARY RETENTION [None]
